FAERS Safety Report 25042592 (Version 2)
Quarter: 2025Q1

REPORT INFORMATION
  Report Type: Spontaneous
  Country: ES (occurrence: ES)
  Receive Date: 20250305
  Receipt Date: 20250317
  Transmission Date: 20250409
  Serious: Yes (Hospitalization)
  Sender: AMERICAN REGENT
  Company Number: ES-AMERICAN REGENT INC-2025000967

PATIENT
  Age: 64 Year
  Sex: Male

DRUGS (1)
  1. FERINJECT [Suspect]
     Active Substance: FERRIC CARBOXYMALTOSE
     Indication: Anaemia
     Route: 065
     Dates: start: 20240502, end: 20241018

REACTIONS (2)
  - Iron overload [Unknown]
  - Off label use [Unknown]

NARRATIVE: CASE EVENT DATE: 20240502
